FAERS Safety Report 18520633 (Version 3)
Quarter: 2021Q2

REPORT INFORMATION
  Report Type: Report from Study
  Country: GR (occurrence: GR)
  Receive Date: 20201119
  Receipt Date: 20210518
  Transmission Date: 20210717
  Serious: Yes (Hospitalization)
  Sender: FDA-Public Use
  Company Number: GR-KARYOPHARM-2020KPT001366

PATIENT
  Age: 73 Year
  Sex: Female
  Weight: 66 kg

DRUGS (12)
  1. ENTECAVIR. [Concomitant]
     Active Substance: ENTECAVIR
     Indication: ANTIVIRAL PROPHYLAXIS
     Dosage: 0.5 G, QD
     Route: 048
     Dates: start: 2013
  2. NORVASC [Concomitant]
     Active Substance: AMLODIPINE BESYLATE
     Indication: HYPERTENSION
     Dosage: 10 MG, QD
     Route: 048
  3. CANCIDAS [Concomitant]
     Active Substance: CASPOFUNGIN ACETATE
     Indication: SEPSIS
     Dosage: 70 MG, QD
     Route: 042
     Dates: start: 20201018
  4. ZITHROMAX [Concomitant]
     Active Substance: AZITHROMYCIN DIHYDRATE
     Indication: SEPSIS
     Dosage: 500 MG, QD
     Route: 042
     Dates: start: 20201018
  5. LINEZOLID. [Concomitant]
     Active Substance: LINEZOLID
     Indication: SEPSIS
     Dosage: 600 MG, BID
     Route: 042
     Dates: start: 20201018
  6. SOLU?MEDROL [Concomitant]
     Active Substance: METHYLPREDNISOLONE SODIUM SUCCINATE
     Indication: SEPSIS
     Dosage: 20 MG, QID
     Route: 042
     Dates: start: 20201018
  7. VALTREX [Concomitant]
     Active Substance: VALACYCLOVIR HYDROCHLORIDE
     Indication: PROPHYLAXIS
     Dosage: 500 MG, QD
     Route: 048
     Dates: start: 20201006
  8. BRIKLIN [Concomitant]
     Active Substance: AMIKACIN
     Indication: SEPSIS
     Dosage: 500 MG, SINGLE
     Route: 042
     Dates: start: 20201018
  9. SELINEXOR [Suspect]
     Active Substance: SELINEXOR
     Indication: PLASMA CELL MYELOMA
     Dosage: 40 MG, 2X/WEEK
     Route: 048
     Dates: start: 20201006, end: 20201110
  10. BACTRIMEL [Concomitant]
     Active Substance: SULFAMETHOXAZOLE\TRIMETHOPRIM
     Indication: SEPSIS
     Dosage: 960 MG, TID
     Route: 042
     Dates: start: 20201018
  11. MERONEM [Concomitant]
     Active Substance: MEROPENEM
     Indication: SEPSIS
     Dosage: 1 G, BID
     Route: 042
     Dates: start: 20201018
  12. DEXAMETHASONE. [Suspect]
     Active Substance: DEXAMETHASONE
     Indication: PLASMA CELL MYELOMA
     Dosage: 20 MG, 2X/WEEK
     Route: 048
     Dates: start: 20201006, end: 20201110

REACTIONS (1)
  - Respiratory tract infection [Recovered/Resolved]

NARRATIVE: CASE EVENT DATE: 20201108
